FAERS Safety Report 22041396 (Version 1)
Quarter: 2023Q1

REPORT INFORMATION
  Report Type: Spontaneous
  Country: US (occurrence: US)
  Receive Date: 20230227
  Receipt Date: 20230227
  Transmission Date: 20230418
  Serious: Yes (Death, Other)
  Sender: FDA-Public Use
  Company Number: US-BRISTOL-MYERS SQUIBB COMPANY-2023-028664

PATIENT
  Age: 85 Year
  Sex: Male

DRUGS (2)
  1. REVLIMID [Suspect]
     Active Substance: LENALIDOMIDE
     Indication: Product used for unknown indication
     Dosage: 1 CAP DAILY FOR 21 DAYS EVERY 28 DAYS
     Route: 048
     Dates: start: 20210421, end: 20221208
  2. XGEVA [Concomitant]
     Active Substance: DENOSUMAB
     Indication: Bone cancer
     Dosage: EVERY 28 DAYS
     Route: 058
     Dates: start: 20210426, end: 20230120

REACTIONS (1)
  - Death [Fatal]

NARRATIVE: CASE EVENT DATE: 20230128
